FAERS Safety Report 8297199-6 (Version None)
Quarter: 2012Q2

REPORT INFORMATION
  Report Type: 
  Country: None (occurrence: None)
  Receive Date: 20120416
  Receipt Date: 20120405
  Transmission Date: 20120825
  Serious: Yes (Other)
  Sender: FDA-Public Use
  Company Number: 2012SP018212

PATIENT
  Age: 4 Year

DRUGS (4)
  1. CLARITIN [Suspect]
     Indication: SEASONAL ALLERGY
     Dosage: 5 MG, QD, PO
     Route: 048
     Dates: start: 20110301, end: 20110501
  2. CLARITIN [Suspect]
     Indication: RHINORRHOEA
     Dosage: 5 MG, QD, PO
     Route: 048
     Dates: start: 20110301, end: 20110501
  3. CLARITIN [Suspect]
     Indication: SEASONAL ALLERGY
     Dosage: 5 MG, QD, PO
     Route: 048
     Dates: start: 20120305, end: 20120401
  4. CLARITIN [Suspect]
     Indication: RHINORRHOEA
     Dosage: 5 MG, QD, PO
     Route: 048
     Dates: start: 20120305, end: 20120401

REACTIONS (3)
  - FEBRILE CONVULSION [None]
  - CRYING [None]
  - TREMOR [None]
